FAERS Safety Report 8225423-4 (Version None)
Quarter: 2012Q1

REPORT INFORMATION
  Report Type: 
  Country: None (occurrence: None)
  Receive Date: 20120321
  Receipt Date: 20120312
  Transmission Date: 20120608
  Serious: Yes (Life-Threatening)
  Sender: FDA-Public Use
  Company Number: CN-BRISTOL-MYERS SQUIBB COMPANY-16408726

PATIENT
  Age: 49 Year
  Sex: Male
  Weight: 55 kg

DRUGS (3)
  1. VINORELBINE [Suspect]
     Indication: NON-SMALL CELL LUNG CANCER
     Dosage: INTER ON 13JUL11 INITIAL DOSE:40 MG FRM 03MAY11 - 31MAY11 20MG FRM 15JUN11 - 13JUL11
     Route: 042
     Dates: start: 20110503
  2. CETUXIMAB [Suspect]
     Indication: NON-SMALL CELL LUNG CANCER
     Dosage: INTER ON 20JUL11,IV INFUSION INITIAL DOSE:640 MG ON 25APR11 400MG FRM 03MAY11 - 20JUL11
     Route: 041
     Dates: start: 20110425
  3. CISPLATIN [Suspect]
     Indication: NON-SMALL CELL LUNG CANCER
     Dosage: INTER ON 06JUL11 INITIAL DOSE:120 MG ON 03MAY11 - 24MAY11 IV 40MG FRM 15JUN11 - 06JUL11 IV DRIP
     Route: 042
     Dates: start: 20110503

REACTIONS (2)
  - LEUKOPENIA [None]
  - NEUTROPENIA [None]
